FAERS Safety Report 10387174 (Version 1)
Quarter: 2014Q3

REPORT INFORMATION
  Report Type: Spontaneous
  Country: US (occurrence: None)
  Receive Date: 20140814
  Receipt Date: 20140814
  Transmission Date: 20150326
  Serious: No
  Sender: FDA-Public Use
  Company Number: None

PATIENT
  Age: 85 Year
  Sex: Male
  Weight: 83.92 kg

DRUGS (3)
  1. SYMBICORT [Suspect]
     Active Substance: BUDESONIDE\FORMOTEROL FUMARATE DIHYDRATE
     Indication: DYSPNOEA
     Route: 048
     Dates: start: 20140515, end: 20140618
  2. GLUCASIMINE [Concomitant]
  3. SIMVASTINE [Concomitant]

REACTIONS (3)
  - Oropharyngeal pain [None]
  - Fungal infection [None]
  - Stomatitis [None]

NARRATIVE: CASE EVENT DATE: 20140610
